FAERS Safety Report 23250994 (Version 1)
Quarter: 2023Q4

REPORT INFORMATION
  Report Type: Spontaneous
  Country: US (occurrence: None)
  Receive Date: 20231130
  Receipt Date: 20231130
  Transmission Date: 20240110
  Serious: Yes (Hospitalization)
  Sender: FDA-Public Use
  Company Number: None

PATIENT
  Age: 61 Year
  Sex: Male
  Weight: 96 kg

DRUGS (1)
  1. GADODIAMIDE [Suspect]
     Active Substance: GADODIAMIDE
     Dates: start: 20231102, end: 20231102

REACTIONS (3)
  - Feeling cold [None]
  - Ear pain [None]
  - Vomiting [None]

NARRATIVE: CASE EVENT DATE: 20231102
